FAERS Safety Report 21739829 (Version 1)
Quarter: 2022Q4

REPORT INFORMATION
  Report Type: Spontaneous
  Country: US (occurrence: None)
  Receive Date: 20221215
  Receipt Date: 20221215
  Transmission Date: 20230113
  Serious: Yes (Other)
  Sender: FDA-Public Use
  Company Number: None

PATIENT
  Sex: Male

DRUGS (6)
  1. RECOMBINATE [Suspect]
     Active Substance: ANTIHEMOPHILIC FACTOR, HUMAN RECOMBINANT
     Indication: Factor VIII deficiency
     Dosage: OTHER QUANTITY : 1801-2400 UNIT;?FREQUENCY : AS DIRECTED;?
     Route: 042
     Dates: start: 20210130
  2. RECOMBINATE [Suspect]
     Active Substance: ANTIHEMOPHILIC FACTOR, HUMAN RECOMBINANT
     Dosage: OTHER QUANTITY : ONE 1980 UNIT ;?FREQUENCY : AS DIRECTED;?
     Route: 042
  3. AMLODIPINE [Concomitant]
     Active Substance: AMLODIPINE BESYLATE
  4. PEG-3350/KCL SOL [Concomitant]
  5. SODIUM CHLORIDE [Concomitant]
     Active Substance: SODIUM CHLORIDE
  6. VALSARTAN [Concomitant]
     Active Substance: VALSARTAN

REACTIONS (4)
  - Haemorrhage [None]
  - Pain [None]
  - Nausea [None]
  - Vomiting [None]
